FAERS Safety Report 6923525-3 (Version None)
Quarter: 2010Q3

REPORT INFORMATION
  Report Type: 
  Country: None (occurrence: None)
  Receive Date: 20100813
  Receipt Date: 20100805
  Transmission Date: 20110219
  Serious: Yes (Hospitalization)
  Sender: FDA-Public Use
  Company Number: A0833458A

PATIENT
  Sex: Female

DRUGS (9)
  1. AVANDIA [Suspect]
     Indication: DIABETES MELLITUS
     Dosage: 8MG PER DAY
     Route: 048
     Dates: start: 20011230, end: 20061030
  2. CARVEDILOL [Concomitant]
  3. GABAPENTIN [Concomitant]
  4. INSULIN [Concomitant]
  5. LISINOPRIL [Concomitant]
  6. PROTONIX [Concomitant]
  7. PRAVACHOL [Concomitant]
  8. MICRONASE [Concomitant]
  9. LOPRESSOR [Concomitant]

REACTIONS (19)
  - ANGINA UNSTABLE [None]
  - ARTHRALGIA [None]
  - BLOOD PRESSURE INADEQUATELY CONTROLLED [None]
  - CARDIAC FAILURE CONGESTIVE [None]
  - CARDIOVASCULAR DISORDER [None]
  - CORONARY ARTERY DISEASE [None]
  - DIABETIC GASTROPARESIS [None]
  - ELECTROCARDIOGRAM QT PROLONGED [None]
  - ELECTROCARDIOGRAM T WAVE ABNORMAL [None]
  - HYPERTENSIVE HEART DISEASE [None]
  - HYPOKALAEMIA [None]
  - INTRACARDIAC THROMBUS [None]
  - MITRAL VALVE INCOMPETENCE [None]
  - MYOCARDIAL INFARCTION [None]
  - PULMONARY HYPERTENSION [None]
  - PYELONEPHRITIS [None]
  - SINUS TACHYCARDIA [None]
  - TRICUSPID VALVE INCOMPETENCE [None]
  - URINARY TRACT INFECTION [None]
